FAERS Safety Report 23036074 (Version 1)
Quarter: 2023Q4

REPORT INFORMATION
  Report Type: Report from Study
  Country: DE (occurrence: DE)
  Receive Date: 20231006
  Receipt Date: 20231006
  Transmission Date: 20240110
  Serious: Yes (Death, Hospitalization)
  Sender: FDA-Public Use
  Company Number: DE-ABBVIE-5438293

PATIENT
  Age: 54 Year
  Sex: Female

DRUGS (5)
  1. RINVOQ [Suspect]
     Active Substance: UPADACITINIB
     Indication: Rheumatoid arthritis
     Route: 048
     Dates: start: 202010
  2. LEFLUNOMIDE [Concomitant]
     Active Substance: LEFLUNOMIDE
     Indication: Rheumatoid arthritis
     Dosage: 20?START DATE TEXT: BEFORE 05JUL2018?STOP DATE TEXT: BETWEEN 08JUL2020AND27JAN2021
  3. METHOTREXATE SODIUM [Concomitant]
     Active Substance: METHOTREXATE SODIUM
     Indication: Rheumatoid arthritis
     Dosage: START DATE TEXT: BEFORE 05-JUL-2018?STOP DATE TEXT: BETWEEN 15OCT2018 14JAN2019
  4. METHOTREXATE SODIUM [Concomitant]
     Active Substance: METHOTREXATE SODIUM
     Indication: Rheumatoid arthritis
     Dosage: START DATE TEXT: BETWEEN 08JUL2020 AND27JAN2021
  5. METHOTREXATE SODIUM [Concomitant]
     Active Substance: METHOTREXATE SODIUM
     Indication: Rheumatoid arthritis
     Dosage: 10 MILLIGRAM; START DATE TEXT: BETWEEN 15OCT2018AND14JAN2019?STOP DATE TEXT: BETWEEN 14JAN2019 AN...

REACTIONS (4)
  - COVID-19 [Fatal]
  - Acute respiratory failure [Fatal]
  - Pulmonary embolism [Fatal]
  - Knee operation [Unknown]

NARRATIVE: CASE EVENT DATE: 20220713
